FAERS Safety Report 5900466-1 (Version None)
Quarter: 2008Q3

REPORT INFORMATION
  Report Type: 
  Country: None (occurrence: None)
  Receive Date: 20080926
  Receipt Date: 20080917
  Transmission Date: 20090109
  Serious: Yes (Hospitalization, Other)
  Sender: FDA-Public Use
  Company Number: FR-PFIZER INC-2008066167

PATIENT
  Sex: Female
  Weight: 45 kg

DRUGS (4)
  1. SUTENT [Suspect]
     Indication: BASAL CELL CARCINOMA
     Route: 048
     Dates: start: 20080710, end: 20080730
  2. RIVOTRIL [Concomitant]
     Indication: PAIN
     Dosage: TEXT:9 DROPS PER DAY, THREE INTAKES PER DAY
     Route: 048
  3. SOPHIDONE [Concomitant]
     Indication: PAIN
     Route: 048
  4. OXINORM [Concomitant]
     Indication: PAIN
     Route: 048

REACTIONS (4)
  - ANAEMIA [None]
  - METRORRHAGIA [None]
  - OFF LABEL USE [None]
  - THROMBOCYTOPENIA [None]
